FAERS Safety Report 12351584 (Version 1)
Quarter: 2016Q2

REPORT INFORMATION
  Report Type: Spontaneous
  Country: US (occurrence: US)
  Receive Date: 20160510
  Receipt Date: 20160510
  Transmission Date: 20160815
  Serious: No
  Sender: FDA-Public Use
  Company Number: US-ELI_LILLY_AND_COMPANY-US201605001285

PATIENT
  Age: 74 Year
  Sex: Female

DRUGS (2)
  1. HUMALOG [Suspect]
     Active Substance: INSULIN LISPRO
     Indication: TYPE 2 DIABETES MELLITUS
     Dosage: UNK, SLIDING SCALE
     Route: 065
     Dates: start: 201604
  2. HUMALOG [Suspect]
     Active Substance: INSULIN LISPRO
     Dosage: UNK, SLIDING SCALE
     Route: 065

REACTIONS (2)
  - Swollen tongue [Not Recovered/Not Resolved]
  - Mouth swelling [Not Recovered/Not Resolved]

NARRATIVE: CASE EVENT DATE: 201604
